FAERS Safety Report 9234261 (Version 1)
Quarter: 2013Q2

REPORT INFORMATION
  Report Type: Spontaneous
  Country: GB (occurrence: GB)
  Receive Date: 20130416
  Receipt Date: 20130416
  Transmission Date: 20140414
  Serious: Yes (Hospitalization, Other)
  Sender: FDA-Public Use
  Company Number: PHHY2013GB035125

PATIENT
  Age: 68 Year
  Sex: Male
  Weight: 63.5 kg

DRUGS (3)
  1. RAMIPRIL [Suspect]
     Indication: HYPERTENSION
     Dosage: 2.5 MG, UNK
     Route: 048
     Dates: start: 20130116, end: 20130117
  2. TERAZOSIN [Concomitant]
     Indication: PROSTATOMEGALY
     Dosage: 10 MG, QD
     Route: 048
  3. FINASTERIDE [Concomitant]
     Indication: PROSTATOMEGALY
     Dosage: 5 MG, QD
     Route: 048
     Dates: end: 201302

REACTIONS (7)
  - Balance disorder [Recovered/Resolved]
  - Urinary retention [Recovered/Resolved]
  - Multiple sclerosis relapse [Recovered/Resolved]
  - Prostatomegaly [Recovered/Resolved]
  - Fluid retention [Recovered/Resolved]
  - Condition aggravated [Recovered/Resolved]
  - Syncope [Recovered/Resolved]
